FAERS Safety Report 4659818-2 (Version None)
Quarter: 2005Q2

REPORT INFORMATION
  Report Type: 
  Country: None (occurrence: None)
  Receive Date: 20050510
  Receipt Date: 20050422
  Transmission Date: 20051028
  Serious: Yes (Death, Hospitalization, Other)
  Sender: FDA-Public Use
  Company Number: MAG-2004-0000311

PATIENT
  Age: 76 Year
  Sex: Male

DRUGS (8)
  1. MORPHINE SULFATE [Suspect]
     Indication: CANCER PAIN
     Dosage: SEE IMAGE
     Route: 048
     Dates: start: 20040225, end: 20040227
  2. MORPHINE SULFATE [Suspect]
     Indication: CANCER PAIN
     Dosage: SEE IMAGE
     Route: 048
     Dates: start: 20040228, end: 20040303
  3. MORPHINE [Suspect]
     Indication: CANCER PAIN
     Dosage: 50 MG, DAILY, IV DRIP
     Route: 041
     Dates: start: 20040310, end: 20040322
  4. HALCION [Suspect]
     Indication: INSOMNIA
     Dosage: 0.25 MG, DAILY, ORAL
     Route: 048
     Dates: start: 20040227, end: 20040229
  5. CISPLATIN [Concomitant]
  6. SOLU-MEDROL [Concomitant]
  7. FLUOROURACIL [Concomitant]
  8. HALOPERIDOL [Concomitant]

REACTIONS (8)
  - CONDITION AGGRAVATED [None]
  - DELIRIUM [None]
  - GASTRIC CANCER [None]
  - HALLUCINATION [None]
  - HALLUCINATION, VISUAL [None]
  - INSOMNIA [None]
  - LYMPHANGIOSIS CARCINOMATOSA [None]
  - PNEUMONIA [None]
